FAERS Safety Report 25359495 (Version 3)
Quarter: 2025Q3

REPORT INFORMATION
  Report Type: Spontaneous
  Country: JP (occurrence: JP)
  Receive Date: 20250526
  Receipt Date: 20250829
  Transmission Date: 20251021
  Serious: Yes (Hospitalization, Other)
  Sender: JOHNSON AND JOHNSON
  Company Number: JP-NShinyaku-EVA20250693601001307081

PATIENT
  Sex: Female

DRUGS (3)
  1. UPTRAVI [Suspect]
     Active Substance: SELEXIPAG
     Indication: Pulmonary arterial hypertension
     Route: 048
     Dates: start: 20241212
  2. UPTRAVI [Suspect]
     Active Substance: SELEXIPAG
     Route: 048
  3. OPSUMIT [Concomitant]
     Active Substance: MACITENTAN
     Indication: Pulmonary arterial hypertension
     Route: 048
     Dates: start: 20240415

REACTIONS (4)
  - Cardiac failure [Recovering/Resolving]
  - Cirrhosis alcoholic [Unknown]
  - Liver disorder [Unknown]
  - Medication error [Unknown]

NARRATIVE: CASE EVENT DATE: 20250101
